FAERS Safety Report 21009659 (Version 3)
Quarter: 2022Q3

REPORT INFORMATION
  Report Type: Spontaneous
  Country: US (occurrence: US)
  Receive Date: 20220627
  Receipt Date: 20220803
  Transmission Date: 20221027
  Serious: Yes (Other)
  Sender: FDA-Public Use
  Company Number: US-PFIZER INC-202200825867

PATIENT
  Age: 26 Year
  Sex: Female

DRUGS (1)
  1. MEDROXYPROGESTERONE ACETATE [Suspect]
     Active Substance: MEDROXYPROGESTERONE ACETATE
     Dosage: 1 ML
     Route: 030

REACTIONS (3)
  - Accidental exposure to product [Unknown]
  - Injury associated with device [Unknown]
  - Needle issue [Unknown]
